FAERS Safety Report 25906035 (Version 1)
Quarter: 2025Q4

REPORT INFORMATION
  Report Type: Spontaneous
  Country: US (occurrence: None)
  Receive Date: 20251010
  Receipt Date: 20251010
  Transmission Date: 20260117
  Serious: Yes (Death)
  Sender: FDA-CTU
  Company Number: None

PATIENT
  Sex: Female

DRUGS (11)
  1. VPRIV [Suspect]
     Active Substance: VELAGLUCERASE ALFA
     Indication: Gaucher^s disease
     Dosage: ?RECONSTITUTE EACH VPRIV VIAL WITH 4.3 ML SWFI; 9 VIALS NEEDED PER DOSE. INFUSE 3600 UNITS (36  ML) DILUTED WITH 100 ML SOD CHLORIDE 0.9% (136 ML TOTAL VOLUME) INTRAVENOUSLY EVERY 2 WEEKS OVER 60 ?MINUTES VIA CURLIN PUMP
     Route: 042
     Dates: start: 20240611
  2. ABILIFY  TAB 5MG [Concomitant]
  3. ADVAIR DISKU AER 500/50 [Concomitant]
  4. ARICEPT  TAB 5MG [Concomitant]
  5. ASPIRIN LOW TAB 81MG EC [Concomitant]
  6. ATORVASTATIN TAB 20MG [Concomitant]
  7. CALCIUM 600 TAB +D [Concomitant]
  8. CLONAZEP ODT TAB 0.25MG [Concomitant]
  9. DILTIAZEM CAP 300MG ER [Concomitant]
  10. DIOVAN TAB 160MG [Concomitant]
  11. DOXAZOSIN  TAB 1MG [Concomitant]

REACTIONS (1)
  - Death [None]
